FAERS Safety Report 15259123 (Version 1)
Quarter: 2018Q3

REPORT INFORMATION
  Report Type: Spontaneous
  Country: US (occurrence: US)
  Receive Date: 20180718
  Receipt Date: 20180718
  Transmission Date: 20181010
  Serious: Yes (Life-Threatening)
  Sender: FDA-Public Use
  Company Number: None

PATIENT
  Age: 64 Year
  Sex: Female
  Weight: 68.85 kg

DRUGS (7)
  1. GABAPENTIN 100 MG CAPS [Concomitant]
  2. CITALOPRAM 10 MG TABS [Concomitant]
  3. OMEPRAZOLE 20 MG CAPS [Concomitant]
  4. VITAMIN D [Concomitant]
     Active Substance: CHOLECALCIFEROL
  5. TEMAZEPAM. [Concomitant]
     Active Substance: TEMAZEPAM
  6. SIMVASTATIN 10 MG [Concomitant]
     Active Substance: SIMVASTATIN
  7. VALSARTAN WITH HCT [Suspect]
     Active Substance: HYDROCHLOROTHIAZIDE\VALSARTAN
     Indication: HYPERTENSION
     Route: 048

REACTIONS (2)
  - Lung neoplasm malignant [None]
  - Product use issue [None]

NARRATIVE: CASE EVENT DATE: 20141001
